FAERS Safety Report 4680712-5 (Version None)
Quarter: 2005Q2

REPORT INFORMATION
  Report Type: 
  Country: None (occurrence: None)
  Receive Date: 20050601
  Receipt Date: 20050519
  Transmission Date: 20051028
  Serious: Yes (Other)
  Sender: FDA-Public Use
  Company Number: 2005078064

PATIENT
  Age: 45 Year
  Sex: 0

DRUGS (1)
  1. GENOTROPIN [Suspect]
     Indication: OFF LABEL USE
     Dosage: (CYCLICAL)

REACTIONS (12)
  - BLOOD ALBUMIN INCREASED [None]
  - BLOOD CREATINE PHOSPHOKINASE INCREASED [None]
  - CARPAL TUNNEL SYNDROME [None]
  - DRUG ABUSER [None]
  - DYSAESTHESIA [None]
  - HYPOAESTHESIA [None]
  - HYPOREFLEXIA [None]
  - NERVE COMPRESSION [None]
  - NERVE CONDUCTION STUDIES ABNORMAL [None]
  - PARAESTHESIA [None]
  - SELF-MEDICATION [None]
  - URINE ELECTROPHORESIS ABNORMAL [None]
